FAERS Safety Report 4592457-0 (Version None)
Quarter: 2005Q1

REPORT INFORMATION
  Report Type: 
  Country: None (occurrence: None)
  Receive Date: 20050222
  Receipt Date: 20050207
  Transmission Date: 20050727
  Serious: Yes (Hospitalization)
  Sender: FDA-Public Use
  Company Number: RENA-11251

PATIENT
  Age: 57 Year
  Sex: Male

DRUGS (11)
  1. PHOSBLOCK [Suspect]
     Indication: HYPERPHOSPHATAEMIA
     Dosage: 2 G TID PO
     Route: 048
     Dates: start: 20040317
  2. EPOETIN BETA [Concomitant]
  3. BLUTAL [Concomitant]
  4. CALCIUM CARBONATE [Concomitant]
  5. SENNOSIDE [Concomitant]
  6. CALCITRIOL [Concomitant]
  7. WARFARIN SODIUM [Concomitant]
  8. DIHYDROCODEINE BITARTRATE INJ [Concomitant]
  9. CHLORPHENIRAMINE MATEATE [Concomitant]
  10. METHYLEPHEDRINE HCL [Concomitant]
  11. CLARITHROMYCIN [Concomitant]

REACTIONS (3)
  - CHOLELITHIASIS [None]
  - DIVERTICULITIS [None]
  - DIVERTICULUM INTESTINAL [None]
